FAERS Safety Report 16791970 (Version 1)
Quarter: 2019Q3

REPORT INFORMATION
  Report Type: Spontaneous
  Country: JP (occurrence: JP)
  Receive Date: 20190910
  Receipt Date: 20190910
  Transmission Date: 20191005
  Serious: Yes (Death)
  Sender: FDA-Public Use
  Company Number: JP-BAYER-2019-166226

PATIENT
  Age: 81 Year

DRUGS (1)
  1. IOPROMIDE. [Suspect]
     Active Substance: IOPROMIDE
     Dosage: DAILY DOSE 80 ML
     Route: 042

REACTIONS (4)
  - Death [Fatal]
  - Adverse reaction [Unknown]
  - Pulmonary oedema [Unknown]
  - Dyspnoea [Unknown]
